FAERS Safety Report 15690085 (Version 1)
Quarter: 2018Q4

REPORT INFORMATION
  Report Type: Spontaneous
  Country: US (occurrence: US)
  Receive Date: 20181205
  Receipt Date: 20181205
  Transmission Date: 20190205
  Serious: Yes (Other)
  Sender: FDA-Public Use
  Company Number: US-PFIZER INC-2018490388

PATIENT
  Age: 85 Year
  Sex: Female

DRUGS (2)
  1. TIKOSYN [Suspect]
     Active Substance: DOFETILIDE
     Indication: ATRIAL FIBRILLATION
     Dosage: UNK UNK, 2X/DAY (TWO TIMES A DAY FOR 5 TO 6 YEARS)
  2. TIKOSYN [Suspect]
     Active Substance: DOFETILIDE
     Dosage: 5 MG, 1X/DAY
     Route: 048

REACTIONS (2)
  - Pulmonary fibrosis [Unknown]
  - Chronic obstructive pulmonary disease [Unknown]
